FAERS Safety Report 7515167-6 (Version None)
Quarter: 2011Q2

REPORT INFORMATION
  Report Type: 
  Country: None (occurrence: None)
  Receive Date: 20110601
  Receipt Date: 20100520
  Transmission Date: 20111010
  Serious: Yes (Other)
  Sender: FDA-Public Use
  Company Number: US-PFIZER INC-2010046555

PATIENT
  Sex: Male
  Weight: 97.975 kg

DRUGS (1)
  1. CHANTIX [Suspect]
     Indication: TOBACCO USER
     Dosage: 1 MG, 2X/DAY
     Route: 048
     Dates: start: 20100301, end: 20100325

REACTIONS (6)
  - AGITATION [None]
  - MOOD SWINGS [None]
  - IRRITABILITY [None]
  - MANIA [None]
  - AGGRESSION [None]
  - ABNORMAL BEHAVIOUR [None]
